FAERS Safety Report 11499756 (Version 2)
Quarter: 2015Q4

REPORT INFORMATION
  Report Type: Spontaneous
  Country: GB (occurrence: GB)
  Receive Date: 20150914
  Receipt Date: 20151015
  Transmission Date: 20160304
  Serious: Yes (Death, Hospitalization)
  Sender: FDA-Public Use
  Company Number: GB-ACCORD-033512

PATIENT
  Age: 72 Year
  Sex: Female

DRUGS (12)
  1. METHOTREXATE [Suspect]
     Active Substance: METHOTREXATE
     Indication: RHEUMATOID ARTHRITIS
     Route: 048
     Dates: start: 20150204, end: 20150507
  2. CLOTRIMAZOLE. [Concomitant]
     Active Substance: CLOTRIMAZOLE
     Route: 061
  3. PRIMIDONE. [Concomitant]
     Active Substance: PRIMIDONE
     Indication: EPILEPSY
     Dosage: 1 TO 2 DAILY.
     Route: 048
  4. QUININE [Concomitant]
     Active Substance: QUININE
     Dosage: AT BEDTIME.
     Route: 048
  5. COCODAMOL [Concomitant]
     Active Substance: ACETAMINOPHEN\CODEINE PHOSPHATE
     Dosage: 30MG/500MG 1 OR 2 FOUR TIMES A DAY.
     Route: 048
  6. PHENERGAN [Concomitant]
     Active Substance: PROMETHAZINE HYDROCHLORIDE
     Indication: DRUG ERUPTION
     Dosage: AT BEDTIME.
     Route: 048
  7. LEVETIRACETAM. [Concomitant]
     Active Substance: LEVETIRACETAM
     Indication: EPILEPSY
     Route: 048
  8. GAVISCON ADVANCE [Concomitant]
     Active Substance: POTASSIUM BICARBONATE\SODIUM ALGINATE
     Dosage: 5-10ML FOUR TIMES A DAY.
     Route: 048
  9. NAPROXEN. [Concomitant]
     Active Substance: NAPROXEN
     Route: 048
     Dates: start: 20141003
  10. OMEPRAZOLE/OMEPRAZOLE MAGNESIUM/OMEPRAZOLE SODIUM [Concomitant]
     Route: 048
  11. AMLODIPINE [Concomitant]
     Active Substance: AMLODIPINE BESYLATE
     Route: 048
  12. FOLATE SODIUM/FOLIC ACID [Concomitant]
     Indication: RHEUMATOID ARTHRITIS
     Route: 048
     Dates: start: 20141029

REACTIONS (4)
  - Pulmonary embolism [Not Recovered/Not Resolved]
  - Infection [Not Recovered/Not Resolved]
  - Hypotension [Not Recovered/Not Resolved]
  - Pneumonitis [Fatal]

NARRATIVE: CASE EVENT DATE: 20150420
